FAERS Safety Report 19090069 (Version 1)
Quarter: 2021Q2

REPORT INFORMATION
  Report Type: Spontaneous
  Country: CN (occurrence: CN)
  Receive Date: 20210404
  Receipt Date: 20210404
  Transmission Date: 20210717
  Serious: Yes (Other)
  Sender: FDA-Public Use
  Company Number: CN-JNJFOC-20210354782

PATIENT
  Age: 40 Year
  Sex: Female
  Weight: 70 kg

DRUGS (2)
  1. DAN SHEN [Concomitant]
     Indication: CARDIOVASCULAR DISORDER
     Dosage: 20 ML, QD
     Route: 041
     Dates: start: 20210316, end: 20210322
  2. RIVAROXABAN [Suspect]
     Active Substance: RIVAROXABAN
     Indication: THROMBOSIS PROPHYLAXIS
     Dosage: 10 MG, QD
     Route: 048
     Dates: start: 20210321, end: 20210322

REACTIONS (5)
  - Thirst [Recovering/Resolving]
  - Renal pain [Recovering/Resolving]
  - Pelvic fluid collection [Unknown]
  - Hydronephrosis [Recovering/Resolving]
  - Adnexa uteri cyst [Unknown]

NARRATIVE: CASE EVENT DATE: 20210322
